FAERS Safety Report 13086363 (Version 1)
Quarter: 2017Q1

REPORT INFORMATION
  Report Type: Report from Study
  Country: ES (occurrence: ES)
  Receive Date: 20170104
  Receipt Date: 20170104
  Transmission Date: 20170428
  Serious: Yes (Hospitalization)
  Sender: FDA-Public Use
  Company Number: ES-PFIZER INC-2016603967

PATIENT
  Age: 80 Year
  Sex: Female

DRUGS (9)
  1. DILUTOL /01036501/ [Interacting]
     Active Substance: TORSEMIDE
     Indication: PORTAL HYPERTENSION
     Dosage: 10 MG, 1X/DAY (1-0-0)
     Route: 048
     Dates: start: 20150830, end: 20150930
  2. PAROXETINE. [Concomitant]
     Active Substance: PAROXETINE
     Indication: DEPRESSION
     Dosage: 20 MG, 1X/DAY (1-0-0)
     Route: 048
     Dates: start: 20120412
  3. NOVOMIX [Concomitant]
     Active Substance: INSULIN ASPART
     Dosage: UNK (16-9-9)
     Route: 058
     Dates: start: 20090910
  4. ALDACTONE [Suspect]
     Active Substance: SPIRONOLACTONE
     Indication: PORTAL HYPERTENSION
     Dosage: 100 MG, 1X/DAY (1-0-0)
     Route: 048
     Dates: start: 20150920, end: 20150930
  5. CARVEDILOL. [Interacting]
     Active Substance: CARVEDILOL
     Indication: HYPERTENSION
     Dosage: 6.25 MG, 1X/DAY (1-0-0)
     Route: 048
     Dates: start: 20090910
  6. FUROSEMIDE. [Interacting]
     Active Substance: FUROSEMIDE
     Indication: PORTAL HYPERTENSION
     Dosage: 40 MG, 2X/DAY (1-0-1)
     Route: 048
     Dates: start: 20150920, end: 20150930
  7. LACTULOSA [Concomitant]
     Active Substance: LACTULOSE
     Dosage: UNK (1-1-1)
     Route: 048
     Dates: start: 20120412
  8. ENALAPRIL [Interacting]
     Active Substance: ENALAPRIL
     Indication: HYPERTENSION
     Dosage: 10 MG, 1X/DAY (1-0-0)
     Route: 048
     Dates: start: 20090910
  9. EUTIROX [Concomitant]
     Active Substance: LEVOTHYROXINE SODIUM
     Dosage: 1 DF, UNK (1 CP)
     Route: 048
     Dates: start: 20120412

REACTIONS (3)
  - Drug interaction [Recovered/Resolved]
  - Hepatic encephalopathy [Recovered/Resolved]
  - Acute kidney injury [Recovered/Resolved]

NARRATIVE: CASE EVENT DATE: 20150930
